FAERS Safety Report 7377248-X (Version None)
Quarter: 2011Q1

REPORT INFORMATION
  Report Type: 
  Country: None (occurrence: None)
  Receive Date: 20110315
  Receipt Date: 20110228
  Transmission Date: 20110831
  Serious: Yes (Hospitalization)
  Sender: FDA-Public Use
  Company Number: DAV-AE-PEN-11-001

PATIENT
  Age: 86 Year
  Sex: Male

DRUGS (7)
  1. MEMANTINE [Concomitant]
  2. PENICILLIN VK [Suspect]
     Indication: PROPHYLAXIS
  3. METOPROLOL [Concomitant]
  4. RIVASTIGMINE [Concomitant]
  5. DIVALPROEX SODIUM [Concomitant]
  6. HYDROCHLOROTHIAZIDE [Concomitant]
  7. METFORMIN [Concomitant]

REACTIONS (4)
  - HAEMOGLOBIN DECREASED [None]
  - CONTUSION [None]
  - GINGIVAL BLEEDING [None]
  - ACTIVATED PARTIAL THROMBOPLASTIN TIME PROLONGED [None]
